FAERS Safety Report 5278891-4 (Version None)
Quarter: 2007Q1

REPORT INFORMATION
  Report Type: 
  Country: None (occurrence: None)
  Receive Date: 20061208
  Receipt Date: 20060125
  Transmission Date: 20070707
  Serious: Yes (Hospitalization)
  Sender: FDA-Public Use
  Company Number: 2006UW01312

PATIENT
  Age: 54 Year
  Sex: Male

DRUGS (8)
  1. CRESTOR [Suspect]
     Dosage: 10 MG QD PO
     Route: 048
     Dates: start: 20050209, end: 20050213
  2. LIPITOR [Suspect]
  3. ZOCOR [Suspect]
  4. PREDNISONE TAB [Concomitant]
  5. NEXIUM [Concomitant]
  6. TOPROL-XL [Concomitant]
  7. PULMICORT [Concomitant]
  8. LISINOPRIL [Concomitant]

REACTIONS (4)
  - ABDOMINAL PAIN [None]
  - NAUSEA [None]
  - PANCREATITIS [None]
  - VOMITING [None]
